FAERS Safety Report 24926580 (Version 2)
Quarter: 2025Q1

REPORT INFORMATION
  Report Type: Spontaneous
  Country: US (occurrence: US)
  Receive Date: 20250205
  Receipt Date: 20250219
  Transmission Date: 20250409
  Serious: No
  Sender: SANDOZ
  Company Number: US-SANDOZ-SDZ2025US006250

PATIENT
  Sex: Male

DRUGS (6)
  1. ORGOVYX [Suspect]
     Active Substance: RELUGOLIX
     Indication: Neoplasm malignant
     Route: 048
  2. ORGOVYX [Suspect]
     Active Substance: RELUGOLIX
     Dosage: 120 MG, QD
     Route: 065
     Dates: start: 20240518
  3. ZOLEDRONIC ACID [Suspect]
     Active Substance: ZOLEDRONIC ACID
     Indication: Distraction osteogenesis
     Dosage: 4 MG, Q4W
     Route: 042
     Dates: start: 20241010
  4. ABIRATERONE [Concomitant]
     Active Substance: ABIRATERONE
     Indication: Prostate cancer
     Route: 065
     Dates: start: 20240731
  5. PREDNISONE [Concomitant]
     Active Substance: PREDNISONE
     Indication: Prostate cancer
     Route: 065
     Dates: start: 20240731
  6. XTANDI [Concomitant]
     Active Substance: ENZALUTAMIDE
     Indication: Prostate cancer
     Route: 065
     Dates: start: 20240518

REACTIONS (9)
  - Lethargy [Unknown]
  - Rash pruritic [Unknown]
  - Bone loss [Unknown]
  - Muscle spasms [Unknown]
  - Asthenia [Unknown]
  - Neck pain [Unknown]
  - Hot flush [Unknown]
  - Malaise [Unknown]
  - Bone pain [Unknown]
